FAERS Safety Report 18270981 (Version 1)
Quarter: 2020Q3

REPORT INFORMATION
  Report Type: Spontaneous
  Country: US (occurrence: US)
  Receive Date: 20200915
  Receipt Date: 20200915
  Transmission Date: 20201103
  Serious: Yes (Hospitalization, Other)
  Sender: FDA-Public Use
  Company Number: US-PURDUE-USA-2020-0166328

PATIENT
  Sex: Male

DRUGS (1)
  1. HYDROCODONE BITARTRATE AND ACETAMINOPHEN [Suspect]
     Active Substance: ACETAMINOPHEN\HYDROCODONE BITARTRATE
     Indication: SKIN LACERATION
     Dosage: 330 MG, Q6H PRN
     Route: 048

REACTIONS (8)
  - Drug dependence [Unknown]
  - Drug detoxification [Unknown]
  - Hypotension [Unknown]
  - Rehabilitation therapy [Unknown]
  - Substance abuse [Unknown]
  - Hospitalisation [Unknown]
  - Suicide attempt [Unknown]
  - Overdose [Unknown]

NARRATIVE: CASE EVENT DATE: 20160204
